FAERS Safety Report 10642710 (Version 1)
Quarter: 2014Q4

REPORT INFORMATION
  Report Type: Spontaneous
  Country: DE (occurrence: DE)
  Receive Date: 20141210
  Receipt Date: 20141210
  Transmission Date: 20150529
  Serious: Yes (Congenital Anomaly, Other)
  Sender: FDA-Public Use
  Company Number: DE-RANBAXY-2014R1-89951

PATIENT
  Age: 1 Day
  Sex: Male
  Weight: 2.96 kg

DRUGS (4)
  1. PRESINOL [Concomitant]
     Active Substance: METHYLDOPA
     Indication: HYPERTENSION
     Route: 064
  2. TOPIRAMATE. [Suspect]
     Active Substance: TOPIRAMATE
     Indication: EPILEPSY
     Dosage: 125 MG, BID
     Route: 064
     Dates: start: 20121115, end: 20130827
  3. L-THYROXIN [Concomitant]
     Active Substance: LEVOTHYROXINE SODIUM
     Indication: HYPOTHYROIDISM
     Dosage: 75 ?G, QD
     Route: 064
     Dates: start: 20121115, end: 20130827
  4. FOLSAURE [Concomitant]
     Active Substance: FOLIC ACID
     Indication: PROPHYLAXIS OF NEURAL TUBE DEFECT
     Route: 064

REACTIONS (11)
  - Atrial septal defect [Recovered/Resolved with Sequelae]
  - Small for dates baby [Recovering/Resolving]
  - Inguinal hernia [Recovered/Resolved with Sequelae]
  - Pulmonary artery stenosis [Not Recovered/Not Resolved]
  - Cleft lip and palate [Not Recovered/Not Resolved]
  - Congenital arterial malformation [Not Recovered/Not Resolved]
  - Hypotonia neonatal [Unknown]
  - Oesophageal atresia [Recovered/Resolved with Sequelae]
  - Cryptorchism [Not Recovered/Not Resolved]
  - Aorticopulmonary septal defect [Recovered/Resolved with Sequelae]
  - Hypoacusis [Not Recovered/Not Resolved]

NARRATIVE: CASE EVENT DATE: 20130827
